FAERS Safety Report 4780079-8 (Version None)
Quarter: 2005Q3

REPORT INFORMATION
  Report Type: 
  Country: None (occurrence: None)
  Receive Date: 20050914
  Receipt Date: 20040908
  Transmission Date: 20060218
  Serious: Yes (Death, Hospitalization)
  Sender: FDA-Public Use
  Company Number: 163-20785-04070286

PATIENT
  Age: 64 Year
  Sex: Male

DRUGS (4)
  1. THALOMID [Suspect]
     Indication: RENAL CELL CARCINOMA STAGE UNSPECIFIED
     Dosage: 100 MG, QHS, ORAL; 150 MG, QHS, ORAL; 150 MG, QHS, ORAL;  200 MG, QHS, ORAL
     Route: 048
     Dates: start: 20040524, end: 20040602
  2. THALOMID [Suspect]
     Indication: RENAL CELL CARCINOMA STAGE UNSPECIFIED
     Dosage: 100 MG, QHS, ORAL; 150 MG, QHS, ORAL; 150 MG, QHS, ORAL;  200 MG, QHS, ORAL
     Route: 048
     Dates: start: 20040603, end: 20040608
  3. THALOMID [Suspect]
     Indication: RENAL CELL CARCINOMA STAGE UNSPECIFIED
     Dosage: 100 MG, QHS, ORAL; 150 MG, QHS, ORAL; 150 MG, QHS, ORAL;  200 MG, QHS, ORAL
     Route: 048
     Dates: start: 20040612, end: 20040627
  4. THALOMID [Suspect]
     Indication: RENAL CELL CARCINOMA STAGE UNSPECIFIED
     Dosage: 100 MG, QHS, ORAL; 150 MG, QHS, ORAL; 150 MG, QHS, ORAL;  200 MG, QHS, ORAL
     Route: 048
     Dates: start: 20040628, end: 20040719

REACTIONS (4)
  - DEATH [None]
  - DISEASE PROGRESSION [None]
  - DIZZINESS [None]
  - UNEVALUABLE EVENT [None]
